FAERS Safety Report 9592245 (Version 1)
Quarter: 2013Q4

REPORT INFORMATION
  Report Type: Spontaneous
  Country: GB (occurrence: GB)
  Receive Date: 20131004
  Receipt Date: 20131004
  Transmission Date: 20140711
  Serious: Yes (Hospitalization, Disabling, Other)
  Sender: FDA-Public Use
  Company Number: GB-009507513-1309GBR013073

PATIENT
  Age: 37 Year
  Sex: Female
  Weight: 95.5 kg

DRUGS (4)
  1. PEGINTERFERON ALFA-2B [Suspect]
     Indication: HEPATITIS C
     Dosage: UNK
     Route: 058
     Dates: start: 20121122, end: 20130304
  2. COPEGUS [Suspect]
     Indication: HEPATITIS C
     Dosage: UNK
     Route: 048
     Dates: start: 20121122, end: 20130312
  3. TELAPREVIR [Suspect]
     Indication: HEPATITIS C
     Dosage: 250 MG, TID
     Route: 048
     Dates: start: 20121122, end: 20130222
  4. ANTINEOPLASTIC (UNSPECIFIED) [Concomitant]
     Indication: LEUKAEMIA
     Dosage: UNK

REACTIONS (4)
  - Sensory loss [Unknown]
  - Mobility decreased [Not Recovered/Not Resolved]
  - Asthenia [Not Recovered/Not Resolved]
  - Myalgia [Not Recovered/Not Resolved]
